FAERS Safety Report 9540644 (Version 2)
Quarter: 2013Q4

REPORT INFORMATION
  Report Type: Spontaneous
  Country: US (occurrence: US)
  Receive Date: 20130920
  Receipt Date: 20131017
  Transmission Date: 20140711
  Serious: Yes (Other)
  Sender: FDA-Public Use
  Company Number: CHPA2013US014304

PATIENT
  Age: 66 Year
  Sex: Female

DRUGS (8)
  1. VOLTAREN GEL [Suspect]
     Indication: FIBROMYALGIA
     Dosage: PUT A LITTLE ON MY FINGER, QD
     Dates: start: 2010, end: 2012
  2. VOLTAREN GEL [Suspect]
     Indication: RHEUMATOID ARTHRITIS
  3. VOLTAREN GEL [Suspect]
     Indication: OSTEOARTHRITIS
  4. PREDNISONE [Suspect]
     Dosage: UNK, UNK
     Dates: start: 2012, end: 201305
  5. METHOTREXATE SANDOZ [Suspect]
     Dosage: UNK, UNK
  6. HUMIRA [Suspect]
     Dosage: UNK, UNK
  7. ENBREL [Suspect]
     Dosage: UNK, UNK
  8. IBUPROFEN [Concomitant]
     Indication: PAIN
     Dosage: UNK, UNK

REACTIONS (12)
  - Diabetes mellitus [Recovered/Resolved]
  - Dysgeusia [Recovered/Resolved]
  - Eructation [Recovered/Resolved]
  - Dyspepsia [Recovering/Resolving]
  - Gingival disorder [Recovered/Resolved]
  - Feeling abnormal [Recovered/Resolved]
  - Weight decreased [Recovered/Resolved]
  - Headache [Recovered/Resolved]
  - Off label use [Unknown]
  - Drug administered at inappropriate site [Unknown]
  - Wrong technique in drug usage process [Unknown]
  - Drug ineffective [Unknown]
